FAERS Safety Report 11689892 (Version 1)
Quarter: 2015Q4

REPORT INFORMATION
  Report Type: Report from Study
  Country: CA (occurrence: CA)
  Receive Date: 20151102
  Receipt Date: 20151102
  Transmission Date: 20160304
  Serious: Yes (Death, Hospitalization)
  Sender: FDA-Public Use
  Company Number: CA-ROCHE-756485

PATIENT
  Age: 65 Year
  Sex: Female
  Weight: 53.3 kg

DRUGS (6)
  1. LENALIDOMIDE [Suspect]
     Active Substance: LENALIDOMIDE
     Indication: CHRONIC LYMPHOCYTIC LEUKAEMIA
     Dosage: ON DAYS 1-21, CYCLE 1
     Route: 048
  2. FLUDARABINE PHOSPHATE. [Suspect]
     Active Substance: FLUDARABINE PHOSPHATE
     Indication: CHRONIC LYMPHOCYTIC LEUKAEMIA
     Dosage: OVER 30 MINS OR 40 MG/M2 ORAL ON DAYS 1-5, LAST DOSE PRIOR TO SAE: 8 JANUARY 2011.
     Route: 042
  3. LENALIDOMIDE [Suspect]
     Active Substance: LENALIDOMIDE
     Dosage: FREQUENCY: EVERY DAY ON DAYS 1-21 DAYS CYCLE 2
     Route: 048
  4. RITUXIMAB [Suspect]
     Active Substance: RITUXIMAB
     Dosage: 100 MG/HR FOR FIRST 15 MIN AN DINCREASED TO NEXT 45.60 MINS ON DAY 5 CYCLE 1 AND DAY 1 CYCLE 2
     Route: 042
  5. RITUXIMAB [Suspect]
     Active Substance: RITUXIMAB
     Dosage: AT RATE OF 50-400 MG/HR BASED ON INFUSION REACTION ON DAY 3 CYCLE 1
     Route: 042
  6. RITUXIMAB [Suspect]
     Active Substance: RITUXIMAB
     Indication: CHRONIC LYMPHOCYTIC LEUKAEMIA
     Dosage: OVER4 HOURS ON DAY OF CYCLE 1, CYCLE,=28 DAYS, LAST DOSE PRIOR TO SAE: 04 JANUARY 2011 FORM:INFUSION
     Route: 042

REACTIONS (2)
  - Pyrexia [Unknown]
  - Haemolysis [Fatal]

NARRATIVE: CASE EVENT DATE: 20110121
